FAERS Safety Report 8785120 (Version 2)
Quarter: 2012Q4

REPORT INFORMATION
  Report Type: 
  Country: US (occurrence: US)
  Receive Date: 20120914
  Receipt Date: 20121010
  Transmission Date: 20130627
  Serious: Yes (Hospitalization, Other)
  Sender: FDA-Public Use
  Company Number: US-SANOFI-AVENTIS-2012SA066707

PATIENT
  Sex: Female
  Weight: 81.64 kg

DRUGS (6)
  1. LANTUS [Suspect]
     Indication: TYPE II DIABETES MELLITUS
     Route: 058
  2. INSULIN [Suspect]
     Indication: TYPE II DIABETES MELLITUS
     Route: 058
  3. PROZAC [Concomitant]
     Indication: DEPRESSION
     Route: 065
  4. THYROID THERAPY [Concomitant]
     Indication: GRAVES^ DISEASE
     Route: 065
  5. COZAAR [Concomitant]
     Indication: HYPERTENSION
     Route: 065
  6. ATENOLOL [Concomitant]
     Indication: HYPERTENSION
     Route: 065

REACTIONS (8)
  - Diabetic ketoacidosis [Unknown]
  - Asthenia [Unknown]
  - Fatigue [Unknown]
  - Bradyphrenia [Unknown]
  - Treatment noncompliance [Unknown]
  - Cataract [Unknown]
  - Visual impairment [Unknown]
  - Hyperglycaemia [Unknown]
